FAERS Safety Report 5959944-1 (Version None)
Quarter: 2008Q4

REPORT INFORMATION
  Report Type: 
  Country: None (occurrence: None)
  Receive Date: 20081120
  Receipt Date: 20081117
  Transmission Date: 20090506
  Serious: Yes (Hospitalization)
  Sender: FDA-Public Use
  Company Number: AT-MERCK-0811AUT00005

PATIENT
  Age: 60 Year
  Sex: Male

DRUGS (4)
  1. ZETIA [Suspect]
     Indication: HYPERLIPIDAEMIA
     Route: 048
     Dates: start: 20060101, end: 20080101
  2. ASPIRIN [Concomitant]
     Route: 065
  3. NEBIVOLOL HYDROCHLORIDE [Concomitant]
     Route: 065
  4. ALLOPURINOL [Concomitant]
     Route: 048
     Dates: start: 20080709

REACTIONS (1)
  - GYNAECOMASTIA [None]
